FAERS Safety Report 12476635 (Version 1)
Quarter: 2016Q2

REPORT INFORMATION
  Report Type: Spontaneous
  Country: DE (occurrence: DE)
  Receive Date: 20160617
  Receipt Date: 20160617
  Transmission Date: 20160815
  Serious: Yes (Death, Other)
  Sender: FDA-Public Use
  Company Number: DE-BRISTOL-MYERS SQUIBB COMPANY-BMS-2016-046694

PATIENT
  Age: 34 Year
  Sex: Male
  Weight: 119 kg

DRUGS (6)
  1. AMISULPRIDE [Concomitant]
     Active Substance: AMISULPRIDE
     Indication: SCHIZOPHRENIA
     Dosage: 200 MG, UNK
     Route: 065
     Dates: start: 20150416, end: 20151201
  2. ARIPIPRAZOLE. [Suspect]
     Active Substance: ARIPIPRAZOLE
     Dosage: 5 UNK, UNK
     Route: 048
     Dates: start: 20151202, end: 20151212
  3. PERAZINE [Concomitant]
     Active Substance: PERAZINE
     Indication: SCHIZOPHRENIA
     Dosage: 25 MG, UNK
     Route: 048
     Dates: start: 20151101
  4. FLUANXOL                           /00109702/ [Concomitant]
     Active Substance: FLUPENTIXOL
     Indication: SCHIZOPHRENIA
     Dosage: 10 MG, UNK
     Route: 065
     Dates: start: 20151101, end: 20151213
  5. ARIPIPRAZOLE. [Suspect]
     Active Substance: ARIPIPRAZOLE
     Indication: SCHIZOPHRENIA
     Dosage: 15 MG, UNK
     Route: 048
     Dates: start: 20151213
  6. CITALOPRAM [Concomitant]
     Active Substance: CITALOPRAM HYDROBROMIDE
     Indication: SCHIZOPHRENIA
     Dosage: 20 MG, UNK
     Route: 048
     Dates: start: 20130618

REACTIONS (2)
  - Completed suicide [Fatal]
  - Prescribed underdose [Unknown]
